FAERS Safety Report 7242984-2 (Version None)
Quarter: 2011Q1

REPORT INFORMATION
  Report Type: 
  Country: None (occurrence: None)
  Receive Date: 20110125
  Receipt Date: 20110119
  Transmission Date: 20110831
  Serious: Yes (Other)
  Sender: FDA-Public Use
  Company Number: JP-PFIZER INC-2010171961

PATIENT
  Age: 8 Year
  Sex: Female

DRUGS (2)
  1. ZITHROMAX [Suspect]
     Indication: NASOPHARYNGITIS
     Dosage: 3.3 G, 1X/DAY
     Route: 048
     Dates: start: 20101213, end: 20101214
  2. RIVOTRIL [Concomitant]
     Indication: EPILEPSY

REACTIONS (1)
  - AGITATION [None]
